FAERS Safety Report 6577980-1 (Version None)
Quarter: 2010Q1

REPORT INFORMATION
  Report Type: 
  Country: None (occurrence: None)
  Receive Date: 20100211
  Receipt Date: 20100201
  Transmission Date: 20100710
  Serious: Yes (Other)
  Sender: FDA-Public Use
  Company Number: US-JNJCH-2009007614

PATIENT
  Sex: Female
  Weight: 71.7 kg

DRUGS (3)
  1. VISINE-A [Suspect]
     Indication: EYE PRURITUS
     Dosage: TEXT:1 DROP ONCE
     Route: 047
     Dates: start: 20090316, end: 20090316
  2. NORVASC [Concomitant]
     Indication: HYPERTENSION
     Dosage: TEXT:2.5 MG, 1 TWICE DAILY
     Route: 048
  3. TRIMEDONE [Concomitant]
     Indication: DRUG USE FOR UNKNOWN INDICATION
     Dosage: TEXT:UNSPECIFIED
     Route: 065

REACTIONS (6)
  - APPLICATION SITE ERYTHEMA [None]
  - APPLICATION SITE PRURITUS [None]
  - DISCOMFORT [None]
  - EYE HAEMORRHAGE [None]
  - EYE IRRITATION [None]
  - HORDEOLUM [None]
